FAERS Safety Report 5074895-5 (Version None)
Quarter: 2006Q3

REPORT INFORMATION
  Report Type: 
  Country: None (occurrence: None)
  Receive Date: 20060717
  Receipt Date: 20051118
  Transmission Date: 20061208
  Serious: No
  Sender: FDA-Public Use
  Company Number: 2005002250

PATIENT
  Age: 60 Year
  Sex: Female

DRUGS (6)
  1. TARCEVA [Suspect]
     Indication: LUNG NEOPLASM MALIGNANT
     Dosage: 150 MG (QD), ORAL
     Route: 047
     Dates: start: 20051109
  2. MORPHINE [Concomitant]
  3. PRILOSEC [Concomitant]
  4. PROCRIT [Concomitant]
  5. LASIX [Concomitant]
  6. POTASSIUM CHLORIDE [Concomitant]

REACTIONS (2)
  - HAIR GROWTH ABNORMAL [None]
  - HIRSUTISM [None]
